FAERS Safety Report 26138871 (Version 1)
Quarter: 2025Q4

REPORT INFORMATION
  Report Type: Report from Study
  Country: US (occurrence: US)
  Receive Date: 20251210
  Receipt Date: 20251210
  Transmission Date: 20260117
  Serious: Yes (Other)
  Sender: ALEXION PHARMACEUTICALS
  Company Number: US-AstraZeneca-CH-01008903A

PATIENT
  Age: 73 Year
  Sex: Female
  Weight: 89 kg

DRUGS (1)
  1. CAPIVASERTIB [Suspect]
     Active Substance: CAPIVASERTIB
     Indication: Breast cancer female
     Dosage: 400 MILLIGRAM, BID
     Dates: start: 202408

REACTIONS (2)
  - Diabetes mellitus [Recovering/Resolving]
  - Fatigue [Recovering/Resolving]
